FAERS Safety Report 13193165 (Version 1)
Quarter: 2017Q1

REPORT INFORMATION
  Report Type: Spontaneous
  Country: US (occurrence: US)
  Receive Date: 20170207
  Receipt Date: 20170207
  Transmission Date: 20170428
  Serious: Yes (Other)
  Sender: FDA-Public Use
  Company Number: US-MEDA-2017010112

PATIENT
  Age: 19 Year
  Sex: Female

DRUGS (1)
  1. ZOLPIDEM 5 MG [Suspect]
     Active Substance: ZOLPIDEM\ZOLPIDEM TARTRATE

REACTIONS (1)
  - Apnoea [Recovered/Resolved]
